FAERS Safety Report 18690670 (Version 2)
Quarter: 2021Q1

REPORT INFORMATION
  Report Type: Report from Study
  Country: US (occurrence: US)
  Receive Date: 20210101
  Receipt Date: 20210122
  Transmission Date: 20210419
  Serious: No
  Sender: FDA-Public Use
  Company Number: US-AMGEN-USASL2020211246

PATIENT
  Age: 48 Year
  Sex: Female
  Weight: 73.97 kg

DRUGS (2)
  1. NEULASTA [Suspect]
     Active Substance: PEGFILGRASTIM
     Indication: NEUTROPENIA
     Dosage: UNK
     Route: 065
  2. NEULASTA [Suspect]
     Active Substance: PEGFILGRASTIM
     Dosage: UNK
     Route: 065

REACTIONS (3)
  - Device malfunction [Unknown]
  - Bone pain [Unknown]
  - Pain [Unknown]

NARRATIVE: CASE EVENT DATE: 20201219
